FAERS Safety Report 9795700 (Version 3)
Quarter: 2014Q2

REPORT INFORMATION
  Report Type: Spontaneous
  Country: TR (occurrence: TR)
  Receive Date: 20140103
  Receipt Date: 20140408
  Transmission Date: 20141212
  Serious: No
  Sender: FDA-Public Use
  Company Number: TR-ELI_LILLY_AND_COMPANY-TR201312008537

PATIENT
  Age: 18 Year
  Sex: Female

DRUGS (2)
  1. CYMBALTA [Suspect]
     Indication: FIBROMYALGIA
     Dosage: 30 MG, QD
     Route: 048
     Dates: start: 20131211
  2. CYMBALTA [Suspect]
     Dosage: 60 MG, UNK
     Route: 065

REACTIONS (1)
  - Neutropenia [Recovered/Resolved]
